FAERS Safety Report 6451644-7 (Version None)
Quarter: 2009Q4

REPORT INFORMATION
  Report Type: 
  Country: None (occurrence: None)
  Receive Date: 20091123
  Receipt Date: 20091112
  Transmission Date: 20100525
  Serious: Yes (Death, Hospitalization)
  Sender: FDA-Public Use
  Company Number: JP-PFIZER INC-2009180390

PATIENT
  Age: 66 Year
  Sex: Female

DRUGS (5)
  1. ZOLOFT [Suspect]
     Dosage: UNK
     Route: 048
     Dates: start: 20081001, end: 20090101
  2. LIMAS [Suspect]
     Dosage: UNK
     Route: 048
     Dates: start: 20080901, end: 20090101
  3. NITRAZEPAM [Concomitant]
     Route: 048
  4. DEZOLAM [Concomitant]
     Route: 048
  5. LANSOPRAZOLE [Concomitant]
     Route: 048

REACTIONS (4)
  - ALTERED STATE OF CONSCIOUSNESS [None]
  - BLOOD CREATINE PHOSPHOKINASE ABNORMAL [None]
  - CARDIAC FAILURE [None]
  - LIVER DISORDER [None]
